FAERS Safety Report 6157073-8 (Version None)
Quarter: 2009Q2

REPORT INFORMATION
  Report Type: 
  Country: None (occurrence: None)
  Receive Date: 20090416
  Receipt Date: 20090410
  Transmission Date: 20091009
  Serious: Yes (Hospitalization)
  Sender: FDA-Public Use
  Company Number: US-BIOGENIDEC-2009BI006167

PATIENT
  Age: 37 Year
  Sex: Female

DRUGS (3)
  1. TYSABRI [Suspect]
     Indication: MULTIPLE SCLEROSIS
     Route: 042
     Dates: start: 20050217, end: 20050201
  2. TYSABRI [Suspect]
     Route: 042
     Dates: start: 20070221
  3. TYSABRI [Suspect]
     Route: 042
     Dates: start: 20080501

REACTIONS (1)
  - MULTIPLE SCLEROSIS RELAPSE [None]
